APPROVED DRUG PRODUCT: LUSEDRA
Active Ingredient: FOSPROPOFOL DISODIUM
Strength: 1050MG/30ML (35MG/ML)
Dosage Form/Route: SOLUTION;INTRAVENOUS
Application: N022244 | Product #001
Applicant: EISAI INC
Approved: Dec 12, 2008 | RLD: No | RS: No | Type: DISCN